FAERS Safety Report 20460782 (Version 2)
Quarter: 2022Q1

REPORT INFORMATION
  Report Type: Spontaneous
  Country: NL (occurrence: NL)
  Receive Date: 20220211
  Receipt Date: 20220217
  Transmission Date: 20220423
  Serious: Yes (Other)
  Sender: FDA-Public Use
  Company Number: NL-MLMSERVICE-20220131-3346935-1

PATIENT
  Age: 23 Year
  Sex: Male

DRUGS (1)
  1. LORAZEPAM [Suspect]
     Active Substance: LORAZEPAM
     Indication: Catatonia
     Dosage: 24 MG, DAILY

REACTIONS (5)
  - Catatonia [Recovering/Resolving]
  - Condition aggravated [Recovering/Resolving]
  - Paradoxical drug reaction [Recovering/Resolving]
  - Drug ineffective [Recovering/Resolving]
  - Prescribed overdose [Recovering/Resolving]
